FAERS Safety Report 6211635-8 (Version None)
Quarter: 2009Q2

REPORT INFORMATION
  Report Type: 
  Country: None (occurrence: None)
  Receive Date: 20090602
  Receipt Date: 20090526
  Transmission Date: 20091009
  Serious: Yes (Hospitalization)
  Sender: FDA-Public Use
  Company Number: A0731246A

PATIENT
  Age: 42 Year
  Sex: Male
  Weight: 68.2 kg

DRUGS (26)
  1. AVANDIA [Suspect]
     Indication: TYPE 2 DIABETES MELLITUS
     Dosage: 4MG TWICE PER DAY
     Route: 048
     Dates: start: 20010101, end: 20051201
  2. SKELAXIN [Concomitant]
  3. METOCLOPRAMIDE [Concomitant]
  4. RANITIDINE [Concomitant]
  5. PRILOSEC [Concomitant]
  6. PREVACID [Concomitant]
  7. SULAR [Concomitant]
  8. QUINAPRIL [Concomitant]
  9. ATENOLOL [Concomitant]
  10. NORVASC [Concomitant]
  11. ACCUPRIL [Concomitant]
  12. ZOCOR [Concomitant]
  13. LIPITOR [Concomitant]
  14. CELEBREX [Concomitant]
  15. HYDROCHLOROTHIAZIDE [Concomitant]
  16. COREG [Concomitant]
  17. NOVOLOG [Concomitant]
  18. GLUCOTROL XL [Concomitant]
  19. DIABETA [Concomitant]
  20. STARLIX [Concomitant]
  21. FORTAMET [Concomitant]
  22. METFORMIN HYDROCHLORIDE [Concomitant]
  23. GLUCOPHAGE [Concomitant]
  24. K DUR [Concomitant]
  25. PLAVIX [Concomitant]
  26. IMDUR [Concomitant]

REACTIONS (14)
  - ANGINA PECTORIS [None]
  - AORTIC VALVE CALCIFICATION [None]
  - CARDIAC ARREST [None]
  - CEREBROVASCULAR ACCIDENT [None]
  - FLUID OVERLOAD [None]
  - FLUID RETENTION [None]
  - HEART INJURY [None]
  - HEPATIC FAILURE [None]
  - INJURY [None]
  - LEFT VENTRICULAR DYSFUNCTION [None]
  - LIVER INJURY [None]
  - MYOCARDIAL INFARCTION [None]
  - PAIN [None]
  - PARALYSIS [None]
